FAERS Safety Report 6640715-8 (Version None)
Quarter: 2010Q1

REPORT INFORMATION
  Report Type: 
  Country: None (occurrence: None)
  Receive Date: 20100318
  Receipt Date: 20100305
  Transmission Date: 20100710
  Serious: Yes (Other)
  Sender: FDA-Public Use
  Company Number: US-ELI_LILLY_AND_COMPANY-US201002002847

PATIENT
  Sex: Female
  Weight: 101.59 kg

DRUGS (7)
  1. BYETTA [Suspect]
     Dosage: UNK, UNK
     Dates: start: 20060601, end: 20061201
  2. PREVACID [Concomitant]
  3. COZAAR [Concomitant]
  4. ACTONEL [Concomitant]
     Dates: start: 20040101
  5. CALCIUM D /00944201/ [Concomitant]
     Dates: start: 20040101
  6. GLUCOPHAGE [Concomitant]
  7. ZOCOR [Concomitant]

REACTIONS (2)
  - GLOMERULONEPHRITIS [None]
  - RENAL DISORDER [None]
